FAERS Safety Report 12776390 (Version 4)
Quarter: 2016Q4

REPORT INFORMATION
  Report Type: Spontaneous
  Country: US (occurrence: US)
  Receive Date: 20160923
  Receipt Date: 20161121
  Transmission Date: 20170207
  Serious: Yes (Other)
  Sender: FDA-Public Use
  Company Number: US-009507513-1609USA006384

PATIENT
  Age: 63 Year
  Sex: Female
  Weight: 63.8 kg

DRUGS (8)
  1. OXALIPLATIN. [Suspect]
     Active Substance: OXALIPLATIN
     Dosage: 150 MG OVER 2 HOURS
  2. FLUOROURACIL. [Concomitant]
     Active Substance: FLUOROURACIL
     Dosage: 710 MG, UNK
     Route: 042
  3. ALOXI [Suspect]
     Active Substance: PALONOSETRON HYDROCHLORIDE
  4. EMEND [Suspect]
     Active Substance: APREPITANT
     Dosage: 150 MG, UNK
     Route: 048
  5. OXALIPLATIN. [Suspect]
     Active Substance: OXALIPLATIN
     Indication: RECTAL CANCER
     Dosage: 150 MG OVER 2 HOURS
     Route: 042
     Dates: start: 20160628, end: 20160628
  6. DECADRON [Suspect]
     Active Substance: DEXAMETHASONE
     Dosage: 12 MG, UNK
  7. FLUOROURACIL. [Concomitant]
     Active Substance: FLUOROURACIL
     Dosage: INFUSION, 4270 MG
  8. LEUCOVORIN. [Concomitant]
     Active Substance: LEUCOVORIN
     Dosage: 710 MG, UNK

REACTIONS (5)
  - Stridor [Recovered/Resolved]
  - Movement disorder [Recovered/Resolved]
  - Hypoaesthesia [Recovered/Resolved]
  - Wheezing [Recovered/Resolved]
  - Dyspnoea [Recovered/Resolved]

NARRATIVE: CASE EVENT DATE: 20160628
